FAERS Safety Report 5627507-3 (Version None)
Quarter: 2008Q1

REPORT INFORMATION
  Report Type: 
  Country: None (occurrence: None)
  Receive Date: 20080215
  Receipt Date: 20080215
  Transmission Date: 20080703
  Serious: Yes (Life-Threatening, Hospitalization)
  Sender: FDA-Public Use
  Company Number: None

PATIENT
  Age: 52 Year
  Sex: Female
  Weight: 76.2043 kg

DRUGS (1)
  1. HEPARIN [Suspect]
     Indication: COAGULOPATHY
     Dosage: 1 CC 2X DAILY SQ
     Route: 058
     Dates: start: 20070601, end: 20070812

REACTIONS (14)
  - ASCITES [None]
  - BLOOD PRESSURE INCREASED [None]
  - CONTUSION [None]
  - DYSPNOEA [None]
  - ELECTROCARDIOGRAM ABNORMAL [None]
  - HEART RATE ABNORMAL [None]
  - HYPERSENSITIVITY [None]
  - INJECTION SITE BRUISING [None]
  - OEDEMA [None]
  - ORAL INTAKE REDUCED [None]
  - PAIN [None]
  - PHARMACEUTICAL PRODUCT COMPLAINT [None]
  - POOR QUALITY DRUG ADMINISTERED [None]
  - WEIGHT INCREASED [None]
